FAERS Safety Report 5393336-1 (Version None)
Quarter: 2007Q3

REPORT INFORMATION
  Report Type: 
  Country: None (occurrence: None)
  Receive Date: 20070720
  Receipt Date: 20070720
  Transmission Date: 20080115
  Serious: No
  Sender: FDA-Public Use
  Company Number: None

PATIENT
  Sex: Female
  Weight: 77.1115 kg

DRUGS (1)
  1. CHANTIX [Suspect]
     Indication: SMOKING CESSATION THERAPY
     Dosage: I NEVER MADE IT PAST 0.5MG BID PO
     Route: 048
     Dates: start: 20070619, end: 20070706

REACTIONS (3)
  - MALAISE [None]
  - MIGRAINE [None]
  - NAUSEA [None]
